FAERS Safety Report 14401657 (Version 3)
Quarter: 2019Q2

REPORT INFORMATION
  Report Type: Spontaneous
  Country: NO (occurrence: NO)
  Receive Date: 20180117
  Receipt Date: 20190404
  Transmission Date: 20190711
  Serious: Yes (Death, Hospitalization)
  Sender: FDA-Public Use
  Company Number: NO-MYLANLABS-2018M1003030

PATIENT
  Age: 67 Year
  Sex: Male

DRUGS (12)
  1. AMPICILLIN [Interacting]
     Active Substance: AMPICILLIN
     Indication: BACTERIAL SEPSIS
     Dosage: UNK
     Route: 042
  2. GENTAMICIN. [Interacting]
     Active Substance: GENTAMICIN
     Indication: BACTERIAL SEPSIS
     Dosage: 80 MG, QD
     Route: 030
  3. CEFALOTIN [Interacting]
     Active Substance: CEPHALOTHIN
     Indication: BACTERIAL SEPSIS
     Dosage: 4 G, QD
     Route: 042
  4. PIVAMPICILLIN [Interacting]
     Active Substance: PIVAMPICILLIN
     Indication: BACTERIAL SEPSIS
     Dosage: UNK
     Route: 065
  5. GENTAMICIN. [Interacting]
     Active Substance: GENTAMICIN
     Dosage: 160 MG, QD
     Route: 030
  6. CEFALOTIN [Interacting]
     Active Substance: CEPHALOTHIN
     Dosage: 12 G, QD
     Route: 042
  7. CEFALOTIN [Interacting]
     Active Substance: CEPHALOTHIN
     Dosage: 6 G, QD
     Route: 065
  8. LINCOCIN [Interacting]
     Active Substance: LINCOMYCIN
     Indication: BACTERIAL SEPSIS
     Dosage: UNK
     Route: 065
  9. ERYTHROMYCIN. [Suspect]
     Active Substance: ERYTHROMYCIN
     Indication: BACTERIAL SEPSIS
     Dosage: UNK
     Route: 065
  10. CEFALOTIN [Interacting]
     Active Substance: CEPHALOTHIN
     Dosage: 6 GRAM
     Route: 065
  11. BACTRIM [Interacting]
     Active Substance: SULFAMETHOXAZOLE\TRIMETHOPRIM
     Indication: BACTERIAL SEPSIS
     Dosage: UNK
     Route: 065
  12. CHLORAMPHENICOL [Interacting]
     Active Substance: CHLORAMPHENICOL
     Indication: BACTERIAL SEPSIS
     Dosage: UNK
     Route: 065

REACTIONS (16)
  - Oedematous kidney [Fatal]
  - Pyrexia [Fatal]
  - Renal artery arteriosclerosis [Fatal]
  - Anuria [Fatal]
  - Renal tubular injury [Fatal]
  - Renal tubular necrosis [Fatal]
  - Drug ineffective [Fatal]
  - Acute kidney injury [Fatal]
  - Anaemia [Unknown]
  - Drug interaction [Unknown]
  - Sepsis [Fatal]
  - Condition aggravated [Fatal]
  - Azotaemia [Fatal]
  - Kidney enlargement [Fatal]
  - Cardiac failure [Fatal]
  - Blood creatinine increased [Fatal]
